FAERS Safety Report 9630856 (Version 1)
Quarter: 2013Q4

REPORT INFORMATION
  Report Type: Spontaneous
  Country: US (occurrence: US)
  Receive Date: 20131018
  Receipt Date: 20131018
  Transmission Date: 20140711
  Serious: Yes (Hospitalization, Other)
  Sender: FDA-Public Use
  Company Number: US-JNJFOC-20131004164

PATIENT
  Age: 64 Year
  Sex: Male

DRUGS (3)
  1. XARELTO [Suspect]
     Indication: PROPHYLAXIS
     Route: 048
     Dates: start: 201309
  2. XARELTO [Suspect]
     Indication: DEEP VEIN THROMBOSIS
     Route: 048
     Dates: start: 201309
  3. ULTRAM [Concomitant]
     Indication: PAIN
     Dosage: AS NEEDED
     Route: 065

REACTIONS (3)
  - Pleural effusion [Recovering/Resolving]
  - International normalised ratio increased [Not Recovered/Not Resolved]
  - Activated partial thromboplastin time prolonged [Recovering/Resolving]
